FAERS Safety Report 5453161-X (Version None)
Quarter: 2007Q3

REPORT INFORMATION
  Report Type: 
  Country: None (occurrence: None)
  Receive Date: 20070914
  Receipt Date: 20070904
  Transmission Date: 20080115
  Serious: Yes (Other)
  Sender: FDA-Public Use
  Company Number: US-PFIZER INC-2007074284

PATIENT
  Sex: Female

DRUGS (2)
  1. CHANTIX [Suspect]
     Indication: SMOKING CESSATION THERAPY
  2. PAXIL CR [Concomitant]
     Indication: DEPRESSION

REACTIONS (4)
  - ABNORMAL DREAMS [None]
  - DEPRESSION [None]
  - NAUSEA [None]
  - SKIN CANCER [None]
